FAERS Safety Report 8355715-X (Version None)
Quarter: 2012Q2

REPORT INFORMATION
  Report Type: 
  Country: None (occurrence: None)
  Receive Date: 20120510
  Receipt Date: 20120427
  Transmission Date: 20120825
  Serious: Yes (Hospitalization)
  Sender: FDA-Public Use
  Company Number: 2012-2038

PATIENT
  Age: 77 Year
  Sex: Female

DRUGS (1)
  1. SOMATULINE DEPOT [Suspect]
     Indication: ACROMEGALY
     Dosage: 90 MG (90^MG, 1 IN 28 D),SUBCUTANEOUS
     Route: 058
     Dates: start: 20100713

REACTIONS (1)
  - INTESTINAL OBSTRUCTION [None]
